FAERS Safety Report 5724491-9 (Version None)
Quarter: 2008Q2

REPORT INFORMATION
  Report Type: 
  Country: None (occurrence: None)
  Receive Date: 20080429
  Receipt Date: 20080414
  Transmission Date: 20081010
  Serious: Yes (Other)
  Sender: FDA-Public Use
  Company Number: 2008BM000085

PATIENT
  Age: 9 Year
  Sex: Male
  Weight: 24.3 kg

DRUGS (7)
  1. BIOPTEN (SAPROPTERIN HYDROCHLORIDE) [Suspect]
     Indication: PHENYLKETONURIA
     Dosage: SEE IMAGE
     Route: 048
     Dates: start: 20070208, end: 20070517
  2. BIOPTEN (SAPROPTERIN HYDROCHLORIDE) [Suspect]
     Indication: PHENYLKETONURIA
     Dosage: SEE IMAGE
     Route: 048
     Dates: start: 20070518, end: 20070905
  3. BIOPTEN (SAPROPTERIN HYDROCHLORIDE) [Suspect]
     Indication: PHENYLKETONURIA
     Dosage: SEE IMAGE
     Route: 048
     Dates: start: 20070906, end: 20080109
  4. BIOPTEN (SAPROPTERIN HYDROCHLORIDE) [Suspect]
     Indication: PHENYLKETONURIA
     Dosage: SEE IMAGE
     Route: 048
     Dates: start: 20080110, end: 20080331
  5. KUVAN [Suspect]
     Dosage: 0 MG
  6. CARBIDOPA AND LEVODOPA [Concomitant]
  7. 5-HYDROXYTRYPTOPHAN [Concomitant]

REACTIONS (13)
  - AMIMIA [None]
  - AMNESIA [None]
  - ASTHENIA [None]
  - CLONUS [None]
  - DIZZINESS [None]
  - EYE MOVEMENT DISORDER [None]
  - INAPPROPRIATE SCHEDULE OF DRUG ADMINISTRATION [None]
  - LEUKOCYTOSIS [None]
  - LOSS OF CONSCIOUSNESS [None]
  - SOMNOLENCE [None]
  - TREATMENT NONCOMPLIANCE [None]
  - TREMOR [None]
  - VISION BLURRED [None]
